FAERS Safety Report 25068173 (Version 3)
Quarter: 2025Q1

REPORT INFORMATION
  Report Type: Report from Study
  Country: US (occurrence: US)
  Receive Date: 20250312
  Receipt Date: 20250317
  Transmission Date: 20250409
  Serious: No
  Sender: PFIZER
  Company Number: US-PFIZER INC-202500053674

PATIENT
  Age: 60 Year
  Sex: Female
  Weight: 113.4 kg

DRUGS (2)
  1. XELJANZ XR [Suspect]
     Active Substance: TOFACITINIB CITRATE
     Indication: Psoriasis
     Dosage: SWALLOW TABLET WHOLE, DO NOT CRUSH, SPLIT, OR CHEW
     Route: 048
     Dates: start: 20241211, end: 202501
  2. XELJANZ XR [Suspect]
     Active Substance: TOFACITINIB CITRATE
     Dosage: SWALLOW TABLET WHOLE, DO NOT CRUSH, SPLIT, OR CHEW
     Route: 048
     Dates: start: 202502

REACTIONS (2)
  - Infection [Unknown]
  - Pain [Not Recovered/Not Resolved]

NARRATIVE: CASE EVENT DATE: 20250101
